APPROVED DRUG PRODUCT: GABAPENTIN
Active Ingredient: GABAPENTIN
Strength: 300MG
Dosage Form/Route: CAPSULE;ORAL
Application: A219319 | Product #002 | TE Code: AB
Applicant: SENORES PHARMACEUTICALS INC
Approved: Aug 7, 2025 | RLD: No | RS: No | Type: RX